FAERS Safety Report 14132034 (Version 2)
Quarter: 2017Q4

REPORT INFORMATION
  Report Type: Spontaneous
  Country: US (occurrence: US)
  Receive Date: 20171027
  Receipt Date: 20171031
  Transmission Date: 20180321
  Serious: Yes (Other)
  Sender: FDA-Public Use
  Company Number: US-TEVA-817753USA

PATIENT
  Sex: Male

DRUGS (1)
  1. COPAXONE [Suspect]
     Active Substance: GLATIRAMER ACETATE
     Indication: MULTIPLE SCLEROSIS

REACTIONS (2)
  - Drug ineffective [Unknown]
  - Multiple sclerosis [Unknown]
